FAERS Safety Report 9161518 (Version 2)
Quarter: 2013Q2

REPORT INFORMATION
  Report Type: Spontaneous
  Country: FR (occurrence: FR)
  Receive Date: 20130313
  Receipt Date: 20130408
  Transmission Date: 20140414
  Serious: Yes (Hospitalization, Other)
  Sender: FDA-Public Use
  Company Number: FR-PFIZER INC-2013081341

PATIENT
  Age: 62 Year
  Sex: Male
  Weight: 69 kg

DRUGS (14)
  1. EFFEXOR LP [Suspect]
     Indication: MAJOR DEPRESSION
     Dosage: 75 MG, 1X/DAY
     Route: 048
     Dates: start: 201204
  2. PROGRAF [Suspect]
     Indication: LUNG TRANSPLANT
     Dosage: 2.5 MG, 2X/DAY
     Route: 048
     Dates: start: 201204, end: 201212
  3. PROGRAF [Suspect]
     Dosage: 3 MG, 2X/DAY
     Route: 048
  4. CORTANCYL [Concomitant]
     Dosage: 6 MG, DAILY
  5. CELLCEPT [Concomitant]
     Dosage: 100 MG, 2X/DAY
  6. EUPANTOL [Concomitant]
     Dosage: 20 MG, 1X/DAY
  7. BACTRIM FORTE [Concomitant]
     Dosage: 1 DF (1 TABLET ON THE 3RD DAY OF THE WEEK)
  8. CALCIDOSE VITAMINE D3 [Concomitant]
     Dosage: 1 DF, 2X/DAY
  9. AZITHROMYCIN [Concomitant]
     Dosage: 250 MG, UNK
  10. CRESTOR [Concomitant]
     Dosage: 10 MG, 2X/DAY
  11. KARDEGIC [Concomitant]
     Dosage: 75 MG, DAILY
  12. ROVALCYTE [Concomitant]
     Dosage: 900 MG, 1X/DAY, IN THE MORNING
  13. UVEDOSE [Concomitant]
     Dosage: 1 DF, DAILY
  14. FUNGIZONE [Concomitant]
     Dosage: 3 DF, DAILY

REACTIONS (8)
  - Overdose [Unknown]
  - Convulsion [Recovered/Resolved]
  - Confusional state [Recovered/Resolved]
  - Tremor [Recovered/Resolved]
  - Pneumothorax [Unknown]
  - Sepsis [Unknown]
  - Renal failure acute [Unknown]
  - Toxicity to various agents [Unknown]
